FAERS Safety Report 7342849-1 (Version None)
Quarter: 2011Q1

REPORT INFORMATION
  Report Type: 
  Country: None (occurrence: None)
  Receive Date: 20110301
  Receipt Date: 20110214
  Transmission Date: 20110831
  Serious: Yes (Hospitalization)
  Sender: FDA-Public Use
  Company Number: TCI2011A00827

PATIENT
  Age: 38 Year
  Sex: Female

DRUGS (2)
  1. ACTOS [Suspect]
     Indication: DIABETES MELLITUS
     Dosage: 30 MG (30 MG, 1 D) PER ORAL
     Route: 048
     Dates: start: 20080101
  2. METFORMIN HYDROCHLORIDE [Suspect]
     Indication: DIABETES MELLITUS
     Dosage: 750 MG (750 MG, 1 D) PER ORAL
     Route: 048
     Dates: start: 20080101

REACTIONS (4)
  - DIABETIC KETOACIDOSIS [None]
  - WEIGHT DECREASED [None]
  - DIABETES MELLITUS [None]
  - DISEASE PROGRESSION [None]
